FAERS Safety Report 12165448 (Version 2)
Quarter: 2016Q2

REPORT INFORMATION
  Report Type: Spontaneous
  Country: DE (occurrence: DE)
  Receive Date: 20160309
  Receipt Date: 20160425
  Transmission Date: 20160815
  Serious: No
  Sender: FDA-Public Use
  Company Number: DE-JNJFOC-20160225543

PATIENT
  Sex: Female

DRUGS (2)
  1. REGAINE MEN SOLUTION 5 % [Suspect]
     Active Substance: MINOXIDIL
     Route: 065
  2. REGAINE MEN SOLUTION 5 % [Suspect]
     Active Substance: MINOXIDIL
     Indication: ALOPECIA AREATA
     Route: 065

REACTIONS (3)
  - Product use issue [Unknown]
  - Off label use [Unknown]
  - Wrong patient received medication [Unknown]
